FAERS Safety Report 12023911 (Version 1)
Quarter: 2016Q1

REPORT INFORMATION
  Report Type: Report from Study
  Country: US (occurrence: US)
  Receive Date: 20160206
  Receipt Date: 20160206
  Transmission Date: 20160526
  Serious: Yes (Hospitalization, Other)
  Sender: FDA-Public Use
  Company Number: US-ABBVIE-15K-163-1478636-00

PATIENT
  Age: 53 Year
  Sex: Male

DRUGS (1)
  1. HUMIRA [Suspect]
     Active Substance: ADALIMUMAB
     Indication: CROHN^S DISEASE
     Route: 058
     Dates: start: 201305, end: 201501

REACTIONS (6)
  - Neck surgery [Unknown]
  - Pancreatitis [Unknown]
  - Spinal operation [Unknown]
  - Spinal operation [Unknown]
  - Crohn^s disease [Unknown]
  - Neck surgery [Unknown]

NARRATIVE: CASE EVENT DATE: 20131125
